FAERS Safety Report 9702005 (Version 4)
Quarter: 2014Q1

REPORT INFORMATION
  Report Type: Report from Study
  Country: US (occurrence: US)
  Receive Date: 20131121
  Receipt Date: 20140122
  Transmission Date: 20141002
  Serious: Yes (Hospitalization, Other)
  Sender: FDA-Public Use
  Company Number: US-PFIZER INC-2013325569

PATIENT
  Age: 17 Year
  Sex: Female
  Weight: 48.3 kg

DRUGS (3)
  1. CRIZOTINIB [Suspect]
     Indication: EWING^S SARCOMA
     Dosage: 215 MG/M2/DOSE, CYCLIC, TWICE A DAY X 21 DAYS
     Route: 048
     Dates: start: 20131101
  2. CYCLOPHOSPHAMIDE [Concomitant]
     Indication: EWING^S SARCOMA
     Dosage: 250 MG/M2/DOSE, CYCLIC, ONCE DAILY X 5 DOSES (DAYS 1-5)
     Route: 042
     Dates: start: 20131101, end: 20131105
  3. TOPOTECAN HYDROCHLORIDE [Concomitant]
     Indication: EWING^S SARCOMA
     Dosage: 0.75 MG/M2/DOSE, CYCLIC, ONCE DAILY X 5 DOSES (DAYS 1-5)
     Route: 042
     Dates: start: 20131101, end: 20131105

REACTIONS (2)
  - Syncope [Recovered/Resolved]
  - Pyrexia [Recovered/Resolved]
